FAERS Safety Report 10067277 (Version 1)
Quarter: 2014Q2

REPORT INFORMATION
  Report Type: Spontaneous
  Country: US (occurrence: None)
  Receive Date: 20140408
  Receipt Date: 20140408
  Transmission Date: 20141212
  Serious: Yes (Other)
  Sender: FDA-Public Use
  Company Number: None

PATIENT
  Age: 34 Year
  Sex: Female

DRUGS (4)
  1. LORAZEPAM [Suspect]
     Indication: BASEDOW^S DISEASE
     Dosage: 4 PILLS/DAY 1 MG AM + AN, 2 MG PM
     Route: 048
     Dates: start: 20140319, end: 20140407
  2. LORAZEPAM [Suspect]
     Indication: ANXIETY
     Dosage: 4 PILLS/DAY 1 MG AM + AN, 2 MG PM
     Route: 048
     Dates: start: 20140319, end: 20140407
  3. LORAZEPAM [Suspect]
     Indication: PANIC DISORDER
     Dosage: 4 PILLS/DAY 1 MG AM + AN, 2 MG PM
     Route: 048
     Dates: start: 20140319, end: 20140407
  4. LORAZEPAM [Suspect]
     Indication: SLEEP DISORDER
     Dosage: 4 PILLS/DAY 1 MG AM + AN, 2 MG PM
     Route: 048
     Dates: start: 20140319, end: 20140407

REACTIONS (21)
  - Product substitution issue [None]
  - Product quality issue [None]
  - Malaise [None]
  - Nausea [None]
  - Vomiting [None]
  - Decreased appetite [None]
  - Anxiety [None]
  - Panic disorder [None]
  - Affect lability [None]
  - Dizziness [None]
  - Myalgia [None]
  - Muscular weakness [None]
  - Dyspnoea [None]
  - Arrhythmia [None]
  - Tremor [None]
  - Hot flush [None]
  - Feeling cold [None]
  - Nightmare [None]
  - Oral discomfort [None]
  - Drug ineffective [None]
  - Somnolence [None]
